FAERS Safety Report 4628754-X (Version None)
Quarter: 2005Q2

REPORT INFORMATION
  Report Type: 
  Country: None (occurrence: None)
  Receive Date: 20050406
  Receipt Date: 20050318
  Transmission Date: 20051028
  Serious: Yes (Hospitalization)
  Sender: FDA-Public Use
  Company Number: 163-20785-05030528

PATIENT
  Age: 64 Year
  Sex: Male

DRUGS (1)
  1. THALOMID (THALIDOMIDE) (200 MILLIGRAMS, CAPSULES) [Suspect]
     Indication: MULTIPLE MYELOMA
     Dosage: 400 MG DAILY ORAL
     Route: 048
     Dates: start: 20040609, end: 20040101

REACTIONS (3)
  - CEREBRAL TOXOPLASMOSIS [None]
  - HYPERCALCAEMIA [None]
  - SOMNOLENCE [None]
